FAERS Safety Report 4683006-7 (Version None)
Quarter: 2005Q2

REPORT INFORMATION
  Report Type: 
  Country: None (occurrence: None)
  Receive Date: 20050602
  Receipt Date: 20050210
  Transmission Date: 20051028
  Serious: No
  Sender: FDA-Public Use
  Company Number: USA050290506

PATIENT
  Age: 47 Year
  Sex: Male

DRUGS (1)
  1. CYMBALTA [Suspect]
     Dates: start: 20040901

REACTIONS (3)
  - HYPOAESTHESIA [None]
  - PARAESTHESIA [None]
  - SLEEP APNOEA SYNDROME [None]
